FAERS Safety Report 13120795 (Version 3)
Quarter: 2017Q1

REPORT INFORMATION
  Report Type: Spontaneous
  Country: TR (occurrence: TR)
  Receive Date: 20170117
  Receipt Date: 20170203
  Transmission Date: 20170428
  Serious: Yes (Other)
  Sender: FDA-Public Use
  Company Number: PHHY2017TR006134

PATIENT
  Age: 55 Year
  Sex: Female
  Weight: 70 kg

DRUGS (4)
  1. GABATEVA [Concomitant]
     Active Substance: GABAPENTIN
     Indication: NEURALGIA
     Dosage: UNK (2X1)
     Route: 048
     Dates: start: 20100101
  2. FINGYA [Suspect]
     Active Substance: FINGOLIMOD
     Indication: MULTIPLE SCLEROSIS
     Dosage: 0.5 MG, UNK (1X1)
     Route: 048
     Dates: start: 20150707, end: 20161102
  3. FINGYA [Suspect]
     Active Substance: FINGOLIMOD
     Dosage: FINGYA WAS RE INTRODUCED
     Route: 048
  4. CYMBALTA [Concomitant]
     Active Substance: DULOXETINE HYDROCHLORIDE
     Indication: NEURALGIA
     Dosage: UNK (2X1)
     Route: 048
     Dates: start: 20100101

REACTIONS (16)
  - Rebound effect [Unknown]
  - Central nervous system lesion [Unknown]
  - Asthenia [Recovering/Resolving]
  - Atrophy [Unknown]
  - Neutrophil count increased [Unknown]
  - Vertebral osteophyte [Unknown]
  - Paresis [Unknown]
  - Blood glucose increased [Unknown]
  - Dizziness [Recovering/Resolving]
  - Spinal osteoarthritis [Unknown]
  - Demyelination [Unknown]
  - Intervertebral disc compression [Unknown]
  - Intervertebral disc protrusion [Unknown]
  - Gait disturbance [Recovering/Resolving]
  - Ataxia [Unknown]
  - Blood calcium increased [Unknown]

NARRATIVE: CASE EVENT DATE: 20161226
